FAERS Safety Report 6690456-6 (Version None)
Quarter: 2010Q2

REPORT INFORMATION
  Report Type: 
  Country: None (occurrence: None)
  Receive Date: 20100419
  Receipt Date: 20100419
  Transmission Date: 20101027
  Serious: Yes (Other)
  Sender: FDA-Public Use
  Company Number: None

PATIENT
  Sex: Female
  Weight: 62.1428 kg

DRUGS (2)
  1. PAXIL [Suspect]
     Dates: start: 19980920
  2. VALIUM [Suspect]

REACTIONS (1)
  - UNEVALUABLE EVENT [None]
